APPROVED DRUG PRODUCT: HYDROCORTISONE
Active Ingredient: HYDROCORTISONE
Strength: 2.5%
Dosage Form/Route: CREAM;TOPICAL
Application: A088799 | Product #001 | TE Code: AT
Applicant: TARO PHARMACEUTICAL INDUSTRIES LTD
Approved: Nov 9, 1984 | RLD: No | RS: No | Type: RX